FAERS Safety Report 6382851-X (Version None)
Quarter: 2009Q3

REPORT INFORMATION
  Report Type: 
  Country: None (occurrence: None)
  Receive Date: 20090928
  Receipt Date: 20090928
  Transmission Date: 20100115
  Serious: Yes (Life-Threatening, Hospitalization)
  Sender: FDA-Public Use
  Company Number: None

PATIENT
  Sex: Female

DRUGS (1)
  1. AVELOX [Suspect]
     Dates: start: 20090908, end: 20090908

REACTIONS (2)
  - CARDIAC DISORDER [None]
  - RESPIRATORY DISORDER [None]
